FAERS Safety Report 14139918 (Version 1)
Quarter: 2017Q4

REPORT INFORMATION
  Report Type: Spontaneous
  Country: US (occurrence: US)
  Receive Date: 20171030
  Receipt Date: 20171030
  Transmission Date: 20180321
  Serious: No
  Sender: FDA-Public Use
  Company Number: US-B.I. PHARMACEUTICALS,INC./RIDGEFIELD-2017-BI-057420

PATIENT
  Age: 49 Year
  Sex: Female

DRUGS (3)
  1. GLYXAMBI [Suspect]
     Active Substance: EMPAGLIFLOZIN\LINAGLIPTIN
     Dosage: ONE TABLET DAILY;  FORM STRENGTH: 25MG/10MG; FORMULATION: TABLET? ADMINISTRATION CORRECT? YES ?ACTIO
     Route: 048
     Dates: start: 201707, end: 201708
  2. METFORMIN [Concomitant]
     Active Substance: METFORMIN HYDROCHLORIDE
     Indication: DIABETES MELLITUS
     Dosage: ONE CAPLET BID;  FORM STRENGTH: 1000MG; FORMULATION: CAPLET
     Route: 048
  3. GLYXAMBI [Suspect]
     Active Substance: EMPAGLIFLOZIN\LINAGLIPTIN
     Indication: DIABETES MELLITUS
     Dosage: ONE TABLET DAILY;  FORM STRENGTH: 10 MG/ 5 MG; FORMULATION: TABLET? ADMINISTRATION CORRECT? YES ?ACT
     Route: 048
     Dates: start: 2016, end: 201707

REACTIONS (2)
  - Peripheral swelling [Unknown]
  - Pain [Unknown]

NARRATIVE: CASE EVENT DATE: 201707
